FAERS Safety Report 11945380 (Version 2)
Quarter: 2016Q1

REPORT INFORMATION
  Report Type: Spontaneous
  Country: None (occurrence: BR)
  Receive Date: 20160125
  Receipt Date: 20160205
  Transmission Date: 20160526
  Serious: Yes (Other)
  Sender: FDA-Public Use
  Company Number: BR-MERCK KGAA-1046874

PATIENT

DRUGS (1)
  1. NOVOTHYROX [Suspect]
     Active Substance: LEVOTHYROXINE SODIUM

REACTIONS (13)
  - Vomiting [None]
  - Tongue disorder [None]
  - Drug abuse [None]
  - Drug dose omission [None]
  - Chest discomfort [None]
  - Euphoric mood [None]
  - Irritability [None]
  - Dysgeusia [None]
  - Wheezing [None]
  - Thinking abnormal [None]
  - Drug-induced liver injury [None]
  - Headache [None]
  - Emotional disorder [None]
